FAERS Safety Report 18659273 (Version 1)
Quarter: 2020Q4

REPORT INFORMATION
  Report Type: Spontaneous
  Country: US (occurrence: US)
  Receive Date: 20201223
  Receipt Date: 20201223
  Transmission Date: 20210114
  Serious: Yes (Other)
  Sender: FDA-Public Use
  Company Number: US-COOPERSURGICAL, INC.-US-2020CPS002532

PATIENT
  Age: 30 Year
  Sex: Female
  Weight: 73.16 kg

DRUGS (1)
  1. PARAGARD T 380A [Suspect]
     Active Substance: COPPER
     Indication: CONTRACEPTION
     Dosage: UNK
     Route: 015
     Dates: start: 20190313

REACTIONS (10)
  - Vaginal discharge [Unknown]
  - Dysfunctional uterine bleeding [Unknown]
  - Device dislocation [Not Recovered/Not Resolved]
  - Human papilloma virus test positive [Unknown]
  - Dysmenorrhoea [Unknown]
  - Post procedural haemorrhage [Unknown]
  - Embedded device [Not Recovered/Not Resolved]
  - Vaginal odour [Unknown]
  - Procedural pain [Unknown]
  - Metrorrhagia [Unknown]

NARRATIVE: CASE EVENT DATE: 201903
